FAERS Safety Report 4699041-9 (Version None)
Quarter: 2005Q2

REPORT INFORMATION
  Report Type: 
  Country: None (occurrence: None)
  Receive Date: 20050623
  Receipt Date: 20050623
  Transmission Date: 20051028
  Serious: Yes (Hospitalization)
  Sender: FDA-Public Use
  Company Number: None

PATIENT
  Age: 75 Year
  Sex: Female
  Weight: 66.2 kg

DRUGS (2)
  1. GEMZAR [Suspect]
     Indication: OVARIAN CANCER
     Dosage: 1760MG     DAYS 1, 8    INTRAVENOU
     Route: 042
     Dates: start: 20050314, end: 20050615
  2. CARBOPLATIN [Suspect]
     Indication: OVARIAN CANCER
     Dosage: 400MG   DAY 1   INTRAVENOU
     Route: 042
     Dates: start: 20050314, end: 20050615

REACTIONS (3)
  - BLOOD COUNT ABNORMAL [None]
  - FEBRILE NEUTROPENIA [None]
  - TRANSFUSION REACTION [None]
